FAERS Safety Report 6916383-4 (Version None)
Quarter: 2010Q3

REPORT INFORMATION
  Report Type: 
  Country: None (occurrence: None)
  Receive Date: 20100810
  Receipt Date: 20100802
  Transmission Date: 20110219
  Serious: Yes (Other)
  Sender: FDA-Public Use
  Company Number: US-JNJFOC-20100800563

PATIENT
  Sex: Female
  Weight: 84.1 kg

DRUGS (28)
  1. BLINDED; USTEKINUMA [Suspect]
     Indication: SARCOIDOSIS
     Route: 058
  2. BLINDED; USTEKINUMA [Suspect]
     Route: 058
  3. GOLIMUMAB-BLINDED [Suspect]
     Indication: SARCOIDOSIS
     Route: 058
  4. GOLIMUMAB-BLINDED [Suspect]
     Route: 058
  5. PLACEBO [Suspect]
     Indication: SARCOIDOSIS
     Route: 058
  6. PLACEBO [Suspect]
     Route: 058
  7. PREDNISONE [Concomitant]
     Indication: SARCOIDOSIS
     Route: 048
  8. METHOTREXATE [Concomitant]
     Indication: SARCOIDOSIS
     Route: 048
  9. FOLIC ACID [Concomitant]
  10. METOPROLOL [Concomitant]
  11. JANUMET [Concomitant]
  12. LEVOTHYROXINE [Concomitant]
  13. NEXIUM [Concomitant]
  14. HYZAAR [Concomitant]
  15. LANTUS [Concomitant]
  16. GLIPIZIDE [Concomitant]
  17. LIPITOR [Concomitant]
  18. MIRAPEX [Concomitant]
  19. TORSEMIDE [Concomitant]
  20. DARVON-N [Concomitant]
  21. LYRICA [Concomitant]
  22. CLONAZEPAM [Concomitant]
  23. HUMALOG [Concomitant]
  24. ASPIRIN [Concomitant]
  25. FISH OIL [Concomitant]
  26. ACETAMINOPHEN [Concomitant]
  27. VITAMIN TAB [Concomitant]
  28. VITAMIN D [Concomitant]

REACTIONS (1)
  - SQUAMOUS CELL CARCINOMA [None]
